FAERS Safety Report 12758878 (Version 1)
Quarter: 2016Q3

REPORT INFORMATION
  Report Type: Spontaneous
  Country: US (occurrence: US)
  Receive Date: 20160919
  Receipt Date: 20160919
  Transmission Date: 20161109
  Serious: No
  Sender: FDA-Public Use
  Company Number: US-VIFOR (INTERNATIONAL) INC.-VIT-2016-04827

PATIENT

DRUGS (1)
  1. VELPHORO [Suspect]
     Active Substance: FERRIC OXYHYDROXIDE
     Indication: HYPERPHOSPHATAEMIA
     Dosage: 750 MG WITH MEALS AND 250 MG WITH SNACKS
     Route: 048

REACTIONS (1)
  - Tooth discolouration [Not Recovered/Not Resolved]
